FAERS Safety Report 17256476 (Version 2)
Quarter: 2021Q4

REPORT INFORMATION
  Report Type: Spontaneous
  Country: US (occurrence: US)
  Receive Date: 20200110
  Receipt Date: 20211117
  Transmission Date: 20220304
  Serious: Yes (Other)
  Sender: FDA-Public Use
  Company Number: US-NOVARTISTESTPH-NVSC2020US003088

PATIENT
  Age: 80 Year
  Sex: Female
  Weight: 61.224 kg

DRUGS (2)
  1. AMITRIPTYLINE HYDROCHLORIDE [Suspect]
     Active Substance: AMITRIPTYLINE HYDROCHLORIDE
     Indication: Depression
     Dosage: 75 MG
     Route: 048
  2. AMITRIPTYLINE HYDROCHLORIDE [Suspect]
     Active Substance: AMITRIPTYLINE HYDROCHLORIDE
     Dosage: 25 MG
     Route: 048

REACTIONS (7)
  - Tardive dyskinesia [Not Recovered/Not Resolved]
  - Chills [Not Recovered/Not Resolved]
  - Hot flush [Not Recovered/Not Resolved]
  - Tongue disorder [Not Recovered/Not Resolved]
  - Tremor [Not Recovered/Not Resolved]
  - Palpitations [Not Recovered/Not Resolved]
  - Dizziness [Not Recovered/Not Resolved]

NARRATIVE: CASE EVENT DATE: 20191128
